FAERS Safety Report 6369080-0 (Version None)
Quarter: 2009Q3

REPORT INFORMATION
  Report Type: 
  Country: None (occurrence: None)
  Receive Date: 20090922
  Receipt Date: 20090918
  Transmission Date: 20100115
  Serious: Yes (Death)
  Sender: FDA-Public Use
  Company Number: PHHY2009AU07091

PATIENT
  Sex: Male

DRUGS (9)
  1. CLOZARIL [Suspect]
     Dosage: UNK
     Dates: start: 19940915, end: 20020601
  2. CLOZARIL [Suspect]
     Dosage: 400 MG
     Dates: start: 20030213, end: 20090130
  3. DIAZEPAM [Concomitant]
     Dosage: 5 MG, NOCTE
  4. GLUCOHEXAL [Concomitant]
     Dosage: 500 MG, BID
  5. LAMOTRIGINE [Concomitant]
     Dosage: 100 MG, BID
  6. MONOPRIL [Concomitant]
  7. TALOHEXAL [Concomitant]
  8. OMEPRAZOLE [Concomitant]
  9. THIAMINE HCL [Concomitant]

REACTIONS (1)
  - SUDDEN DEATH [None]
